FAERS Safety Report 17318444 (Version 2)
Quarter: 2020Q1

REPORT INFORMATION
  Report Type: Report from Study
  Country: CN (occurrence: CN)
  Receive Date: 20200124
  Receipt Date: 20200211
  Transmission Date: 20200409
  Serious: Yes (Other)
  Sender: FDA-Public Use
  Company Number: NVSC2020CN016388

PATIENT
  Age: 70 Year
  Sex: Male

DRUGS (16)
  1. ISOSORBIDE MONONITRATE. [Concomitant]
     Active Substance: ISOSORBIDE MONONITRATE
     Indication: PRE-EXISTING DISEASE
     Dosage: 20 MG, UNKNOWN
     Route: 048
     Dates: start: 200304, end: 20190903
  2. TRIMETAZIDINE DIHYDROCHLORIDE [Concomitant]
     Active Substance: TRIMETAZIDINE DIHYDROCHLORIDE
     Indication: PRE-EXISTING DISEASE
     Dosage: 20 MG, UNKNOWN
     Route: 048
     Dates: start: 200304, end: 20190903
  3. RABEPRAZOLE SODIUM. [Concomitant]
     Active Substance: RABEPRAZOLE SODIUM
     Indication: PRE-EXISTING DISEASE
     Dosage: 20 MG, UNKNOWN
     Route: 048
     Dates: start: 200304, end: 20190903
  4. TOLVAPTAN [Concomitant]
     Active Substance: TOLVAPTAN
     Indication: PRE-EXISTING DISEASE
     Dosage: 10 MG, UNKNOWN
     Route: 048
     Dates: start: 200304, end: 20190903
  5. PIPERAZINE FERULAT [Concomitant]
     Indication: PRE-EXISTING DISEASE
     Dosage: 150 MG, UNKNOWN
     Route: 048
     Dates: start: 201902, end: 20190903
  6. ALLOPURINE [Concomitant]
     Indication: PRE-EXISTING DISEASE
     Dosage: 1 DF, UNKNOWN
     Route: 048
     Dates: start: 201904, end: 20190903
  7. ATORVASTATIN CALCIUM. [Concomitant]
     Active Substance: ATORVASTATIN CALCIUM
     Indication: PRE-EXISTING DISEASE
     Dosage: 20 MG, UNKNOWN
     Route: 048
     Dates: start: 200304, end: 20190903
  8. CLOPIDOGREL HYDROGEN SULFATE [Concomitant]
     Active Substance: CLOPIDOGREL BISULFATE
     Indication: PRE-EXISTING DISEASE
     Dosage: 75 MG, UNKNOWN
     Route: 048
     Dates: start: 200304, end: 20190903
  9. WARFARIN [Concomitant]
     Active Substance: WARFARIN
     Indication: PRE-EXISTING DISEASE
     Dosage: 3 MG, UNKNOWN
     Route: 048
     Dates: start: 200304, end: 20190903
  10. NICORANDIL [Concomitant]
     Active Substance: NICORANDIL
     Indication: PRE-EXISTING DISEASE
     Dosage: 5 MG, UNKNOWN
     Route: 048
     Dates: start: 200304, end: 20190903
  11. TORASEMIDE [Concomitant]
     Active Substance: TORSEMIDE
     Indication: PRE-EXISTING DISEASE
     Dosage: 10 MG, UNKNOWN
     Route: 048
     Dates: start: 200304, end: 20190903
  12. ENTRESTO [Suspect]
     Active Substance: SACUBITRIL\VALSARTAN
     Indication: CARDIAC FAILURE CHRONIC
     Dosage: 50 MG, UNKNOWN
     Route: 048
     Dates: start: 20190808
  13. MONTELUKAST SODIUM. [Concomitant]
     Active Substance: MONTELUKAST SODIUM
     Indication: PRE-EXISTING DISEASE
     Dosage: 10 MG, UNKNOWN
     Route: 048
     Dates: start: 201904, end: 20190903
  14. KETOTIFEN FUMARATE. [Concomitant]
     Active Substance: KETOTIFEN FUMARATE
     Indication: PRE-EXISTING DISEASE
     Dosage: 1 MG, UNKNOWN
     Route: 048
     Dates: start: 201904, end: 20190903
  15. SPIRONOLACTON [Concomitant]
     Active Substance: SPIRONOLACTONE
     Indication: PRE-EXISTING DISEASE
     Dosage: 20 MG, UNKNOWN
     Route: 048
     Dates: start: 200304, end: 20190903
  16. DIGOXIN. [Concomitant]
     Active Substance: DIGOXIN
     Indication: PRE-EXISTING DISEASE
     Dosage: 0.125 MG, UNKNOWN
     Route: 048
     Dates: start: 200304, end: 20190903

REACTIONS (2)
  - Vertigo [Recovered/Resolved]
  - Chest discomfort [Recovering/Resolving]

NARRATIVE: CASE EVENT DATE: 201908
